FAERS Safety Report 17799465 (Version 1)
Quarter: 2020Q2

REPORT INFORMATION
  Report Type: Spontaneous
  Country: GB (occurrence: GB)
  Receive Date: 20200518
  Receipt Date: 20200518
  Transmission Date: 20200714
  Serious: Yes (Other)
  Sender: FDA-Public Use
  Company Number: NVSC2020GB132557

PATIENT
  Age: 87 Year
  Sex: Female

DRUGS (1)
  1. CO-AMOXICLAV [Suspect]
     Active Substance: AMOXICILLIN\CLAVULANATE POTASSIUM
     Indication: PRODUCT USED FOR UNKNOWN INDICATION
     Dosage: 1.2 G
     Route: 042

REACTIONS (6)
  - Respiratory rate increased [Unknown]
  - Malaise [Unknown]
  - Flushing [Unknown]
  - Tongue discomfort [Unknown]
  - Oxygen saturation decreased [Unknown]
  - Nausea [Unknown]
